FAERS Safety Report 19072852 (Version 2)
Quarter: 2021Q2

REPORT INFORMATION
  Report Type: Spontaneous
  Country: US (occurrence: US)
  Receive Date: 20210330
  Receipt Date: 20210407
  Transmission Date: 20210717
  Serious: Yes (Hospitalization)
  Sender: FDA-Public Use
  Company Number: US-SECURA BIO, INC.-2021US002276

PATIENT

DRUGS (4)
  1. COPIKTRA [Suspect]
     Active Substance: DUVELISIB
     Dosage: 45 MG EVERY 12 HRS
  2. GABAPENTIN. [Concomitant]
     Active Substance: GABAPENTIN
     Indication: PAIN
  3. GABAPENTIN. [Concomitant]
     Active Substance: GABAPENTIN
     Indication: HERPES ZOSTER
     Dosage: UNSPECIFIED DOSE
     Route: 065
     Dates: start: 202103
  4. COPIKTRA [Suspect]
     Active Substance: DUVELISIB
     Indication: CUTANEOUS T-CELL LYMPHOMA
     Dosage: 45 MG EVERY 12 HRS
     Route: 048
     Dates: start: 20210215

REACTIONS (2)
  - Confusional state [Unknown]
  - Pyrexia [Unknown]
